FAERS Safety Report 4824287-6 (Version None)
Quarter: 2005Q4

REPORT INFORMATION
  Report Type: 
  Country: None (occurrence: None)
  Receive Date: 20051109
  Receipt Date: 20050721
  Transmission Date: 20060501
  Serious: Yes (Hospitalization)
  Sender: FDA-Public Use
  Company Number: US-MERCK-0507USA03360

PATIENT
  Age: 73 Year
  Sex: Female
  Weight: 74 kg

DRUGS (13)
  1. VIOXX [Suspect]
     Indication: ANALGESIC EFFECT
     Route: 048
     Dates: start: 20000101, end: 20031101
  2. VIOXX [Suspect]
     Indication: ARTHRITIS
     Route: 048
     Dates: start: 20000101, end: 20031101
  3. ASPIRIN [Concomitant]
     Route: 048
     Dates: start: 20010701, end: 20030701
  4. PREMARIN [Concomitant]
     Route: 065
     Dates: start: 19700101, end: 20030701
  5. METOCLOPRAMIDE [Concomitant]
     Route: 065
  6. NEXIUM [Concomitant]
     Route: 065
  7. WARFARIN [Concomitant]
     Route: 065
  8. ULTRAM [Concomitant]
     Route: 065
  9. FLONASE [Concomitant]
     Route: 065
  10. PENICILLIN VK [Concomitant]
     Route: 065
  11. OMEPRAZOLE [Concomitant]
     Route: 065
  12. ZYRTEC [Concomitant]
     Route: 065
  13. VANCENASE [Concomitant]
     Route: 065

REACTIONS (5)
  - DEEP VEIN THROMBOSIS [None]
  - OSTEOPOROSIS [None]
  - PANCREATITIS [None]
  - PULMONARY EMBOLISM [None]
  - SEPSIS [None]
